FAERS Safety Report 10242602 (Version 1)
Quarter: 2014Q2

REPORT INFORMATION
  Report Type: Report from Study
  Country: NL (occurrence: NL)
  Receive Date: 20140617
  Receipt Date: 20140617
  Transmission Date: 20141212
  Serious: No
  Sender: FDA-Public Use
  Company Number: NL-B.I. PHARMACEUTICALS,INC./RIDGEFIELD-2014-BI-26585NL

PATIENT
  Age: 64 Year
  Sex: Female
  Weight: 95 kg

DRUGS (2)
  1. TRAJENTA [Suspect]
     Indication: DIABETES MELLITUS
     Dosage: 5 MG
     Route: 065
     Dates: start: 20130504, end: 20140507
  2. ACENOCOUMAROL [Concomitant]
     Route: 065
     Dates: start: 201011

REACTIONS (2)
  - Urticaria [Recovered/Resolved]
  - Muscle spasms [Recovered/Resolved]
